FAERS Safety Report 13245841 (Version 1)
Quarter: 2017Q1

REPORT INFORMATION
  Report Type: Spontaneous
  Country: BE (occurrence: BE)
  Receive Date: 20170217
  Receipt Date: 20170217
  Transmission Date: 20170428
  Serious: Yes (Other)
  Sender: FDA-Public Use
  Company Number: BE-JNJFOC-20170210065

PATIENT
  Sex: Male

DRUGS (1)
  1. DARZALEX [Suspect]
     Active Substance: DARATUMUMAB
     Indication: PLASMA CELL MYELOMA
     Dates: start: 201610

REACTIONS (8)
  - Confusional state [Unknown]
  - Incoherent [Unknown]
  - Urinary incontinence [Unknown]
  - Pyrexia [Unknown]
  - Tremor [Unknown]
  - Loss of consciousness [Unknown]
  - Chills [Unknown]
  - Hypokinesia [Unknown]
